FAERS Safety Report 15303721 (Version 1)
Quarter: 2018Q3

REPORT INFORMATION
  Report Type: Report from Study
  Country: US (occurrence: US)
  Receive Date: 20180821
  Receipt Date: 20180821
  Transmission Date: 20181010
  Serious: No
  Sender: FDA-Public Use
  Company Number: US-AMGEN INC.-USASL2018098380

PATIENT
  Sex: Female

DRUGS (1)
  1. AIMOVIG [Suspect]
     Active Substance: ERENUMAB-AOOE
     Indication: PRODUCT USED FOR UNKNOWN INDICATION
     Dosage: 70 MG, QMO
     Route: 065
     Dates: start: 20180717

REACTIONS (6)
  - Neck pain [Unknown]
  - Muscle spasms [Not Recovered/Not Resolved]
  - Feeling abnormal [Unknown]
  - Migraine [Not Recovered/Not Resolved]
  - Nausea [Unknown]
  - Mobility decreased [Unknown]

NARRATIVE: CASE EVENT DATE: 20180717
